FAERS Safety Report 5541031-8 (Version None)
Quarter: 2007Q4

REPORT INFORMATION
  Report Type: 
  Country: None (occurrence: None)
  Receive Date: 20071209
  Receipt Date: 20061228
  Transmission Date: 20080405
  Serious: No
  Sender: FDA-Public Use
  Company Number: US-AMGEN-KDL205091

PATIENT
  Sex: Female

DRUGS (1)
  1. ENBREL [Suspect]
     Indication: RHEUMATOID ARTHRITIS
     Route: 058
     Dates: start: 20060910

REACTIONS (5)
  - ABDOMINAL PAIN UPPER [None]
  - INJECTION SITE REACTION [None]
  - PAIN [None]
  - SKIN PAPILLOMA [None]
  - SPINAL FRACTURE [None]
